FAERS Safety Report 4951976-5 (Version None)
Quarter: 2006Q1

REPORT INFORMATION
  Report Type: 
  Country: None (occurrence: None)
  Receive Date: 20060322
  Receipt Date: 20060322
  Transmission Date: 20060701
  Serious: Yes (Hospitalization)
  Sender: FDA-Public Use
  Company Number: None

PATIENT
  Sex: Male

DRUGS (3)
  1. DIPHENHYDRAMINE [Suspect]
     Dosage: 50 MG IM
     Route: 030
     Dates: start: 20060227, end: 20060306
  2. VISTARIL CAP [Suspect]
     Dosage: 100 MG IM
     Route: 030
     Dates: start: 20060227, end: 20060306
  3. COGENTIN [Suspect]

REACTIONS (3)
  - DROOLING [None]
  - INCONTINENCE [None]
  - POSTURE ABNORMAL [None]
